FAERS Safety Report 15314282 (Version 2)
Quarter: 2018Q3

REPORT INFORMATION
  Report Type: Spontaneous
  Country: US (occurrence: US)
  Receive Date: 20180824
  Receipt Date: 20180828
  Transmission Date: 20181010
  Serious: No
  Sender: FDA-Public Use
  Company Number: US-PFIZER INC-2018340084

PATIENT
  Age: 46 Year
  Sex: Female
  Weight: 59.86 kg

DRUGS (4)
  1. EMBEDA [Suspect]
     Active Substance: MORPHINE SULFATE\NALTREXONE HYDROCHLORIDE
     Indication: PAIN
  2. LYRICA [Suspect]
     Active Substance: PREGABALIN
     Indication: AREFLEXIA
     Dosage: 100 MG, 3X/DAY
     Route: 048
     Dates: start: 201807
  3. LYRICA [Suspect]
     Active Substance: PREGABALIN
     Indication: PAIN
  4. EMBEDA [Suspect]
     Active Substance: MORPHINE SULFATE\NALTREXONE HYDROCHLORIDE
     Indication: SPINAL DISORDER
     Dosage: 31.2 MG, 2X/DAY (30?1.2MG CAPSULES; 30 MG MORPHINE SULFATE/1.2MG NALTREXONE HYDROCHLORIDE)
     Route: 048
     Dates: start: 201806

REACTIONS (2)
  - Alopecia [Recovered/Resolved]
  - Hypoaesthesia [Unknown]

NARRATIVE: CASE EVENT DATE: 2018
